FAERS Safety Report 10567489 (Version 1)
Quarter: 2014Q4

REPORT INFORMATION
  Report Type: Spontaneous
  Country: DE (occurrence: DE)
  Receive Date: 20141106
  Receipt Date: 20141106
  Transmission Date: 20150529
  Serious: Yes (Other)
  Sender: FDA-Public Use
  Company Number: DE-AUROBINDO-AUR-APL-2014-11480

PATIENT
  Sex: Male
  Weight: 3.77 kg

DRUGS (2)
  1. TAVOR [Concomitant]
     Active Substance: LORAZEPAM
     Indication: AGORAPHOBIA
     Dosage: 1.5 MG, ONCE A DAY
     Route: 064
  2. PAROXETINE [Suspect]
     Active Substance: PAROXETINE\PAROXETINE HYDROCHLORIDE
     Indication: DEPRESSION
     Dosage: 40 MG, ONCE A DAY
     Route: 064
     Dates: start: 20130718, end: 20140413

REACTIONS (2)
  - Foetal exposure during pregnancy [Unknown]
  - Myoclonus [Unknown]
